FAERS Safety Report 4399017-5 (Version None)
Quarter: 2004Q3

REPORT INFORMATION
  Report Type: 
  Country: None (occurrence: None)
  Receive Date: 20040712
  Receipt Date: 20040617
  Transmission Date: 20050211
  Serious: Yes (Disabling)
  Sender: FDA-Public Use
  Company Number: A03200401963

PATIENT
  Age: 49 Year
  Sex: Female

DRUGS (1)
  1. ELOXATIN [Suspect]
     Indication: COLORECTAL CANCER STAGE IV
     Dosage: INTRAVENOUS NOS
     Route: 042
     Dates: start: 20040601, end: 20040601

REACTIONS (3)
  - FALL [None]
  - GAIT DISTURBANCE [None]
  - MOVEMENT DISORDER [None]
